FAERS Safety Report 7641866-1 (Version None)
Quarter: 2011Q3

REPORT INFORMATION
  Report Type: 
  Country: None (occurrence: None)
  Receive Date: 20110728
  Receipt Date: 20110715
  Transmission Date: 20111222
  Serious: Yes (Hospitalization, Other)
  Sender: FDA-Public Use
  Company Number: US-AMGEN-USASP2011023643

PATIENT
  Age: 25 Year
  Sex: Female
  Weight: 51.701 kg

DRUGS (13)
  1. ENBREL [Suspect]
     Indication: PSORIASIS
     Dosage: 50 MG, QWK
     Dates: start: 20110105, end: 20110301
  2. DEMEROL [Concomitant]
     Dosage: UNK UNK, QWK
  3. OXYCODONE HCL [Concomitant]
     Dosage: 10 MG, Q4H
     Route: 048
     Dates: start: 20110407, end: 20110417
  4. DULCOLAX [Concomitant]
     Dosage: 10 MG, Q4H
     Route: 054
     Dates: start: 20110411, end: 20110511
  5. IBUPROFEN [Concomitant]
     Dosage: UNK UNK, PRN
  6. COLACE [Concomitant]
     Dosage: 100 MG, BID
     Route: 048
     Dates: start: 20110411, end: 20110511
  7. MIRALAX [Concomitant]
     Dosage: UNK UNK, QD
     Route: 048
     Dates: start: 20110406, end: 20110506
  8. ENBREL [Suspect]
     Indication: PSORIATIC ARTHROPATHY
     Dosage: 50 MG, 2 TIMES/WK
     Dates: start: 20100914, end: 20101201
  9. VICODIN [Concomitant]
     Dosage: 500 MG, Q6H
     Route: 048
     Dates: start: 20110406, end: 20110506
  10. CITALOPRAM HYDROBROMIDE [Concomitant]
     Dosage: 20 MG, QD
  11. TYLENOL (CAPLET) [Concomitant]
     Dosage: 650 MG, Q4H
     Route: 048
     Dates: start: 20110406, end: 20110506
  12. MAGAL [Concomitant]
     Dosage: 20 ML, QD
     Route: 048
     Dates: start: 20110406, end: 20110506
  13. ZOFRAN [Concomitant]
     Dosage: 4 MG, Q6H
     Route: 042
     Dates: start: 20110408, end: 20110508

REACTIONS (13)
  - SLEEP DISORDER [None]
  - BLOOD GLUCOSE INCREASED [None]
  - PSORIASIS [None]
  - VISUAL IMPAIRMENT [None]
  - UPPER RESPIRATORY TRACT INFECTION [None]
  - GUILLAIN-BARRE SYNDROME [None]
  - HEADACHE [None]
  - PROCEDURAL HEADACHE [None]
  - INFLUENZA [None]
  - URINARY INCONTINENCE [None]
  - POLYNEUROPATHY [None]
  - ARTHRALGIA [None]
  - JOINT SWELLING [None]
